FAERS Safety Report 21449182 (Version 1)
Quarter: 2022Q4

REPORT INFORMATION
  Report Type: Spontaneous
  Country: DE (occurrence: DE)
  Receive Date: 20221013
  Receipt Date: 20221013
  Transmission Date: 20230113
  Serious: Yes (Hospitalization, Other)
  Sender: FDA-Public Use
  Company Number: DE-ADRED-08084-01

PATIENT
  Age: 56 Year
  Sex: Female
  Weight: 64 kg

DRUGS (15)
  1. FLUOROURACIL [Suspect]
     Active Substance: FLUOROURACIL
     Indication: Product used for unknown indication
     Dosage: UNKNOWN
     Route: 065
  2. IRINOTECAN [Suspect]
     Active Substance: IRINOTECAN
     Indication: Product used for unknown indication
     Dosage: UNKNOWN
     Route: 065
  3. TORSEMIDE [Suspect]
     Active Substance: TORSEMIDE
     Indication: Product used for unknown indication
     Route: 048
  4. TINZAPARIN [Suspect]
     Active Substance: TINZAPARIN
     Indication: Product used for unknown indication
     Dosage: 14000 IE
     Route: 058
  5. ZOPICLONE [Concomitant]
     Active Substance: ZOPICLONE
     Indication: Product used for unknown indication
     Route: 048
  6. METAMIZOLE [Concomitant]
     Active Substance: METAMIZOLE
     Indication: Product used for unknown indication
     Route: 048
  7. GRANISETRON [Concomitant]
     Active Substance: GRANISETRON
     Indication: Product used for unknown indication
     Route: 048
  8. LOPERAMIDE [Concomitant]
     Active Substance: LOPERAMIDE
     Indication: Product used for unknown indication
     Route: 048
  9. MORPHINE [Concomitant]
     Active Substance: MORPHINE
     Indication: Product used for unknown indication
     Route: 048
  10. METOCLOPRAMIDE [Concomitant]
     Active Substance: METOCLOPRAMIDE
     Indication: Product used for unknown indication
     Route: 048
  11. ALLOPURINOL [Concomitant]
     Active Substance: ALLOPURINOL
     Indication: Product used for unknown indication
     Route: 048
  12. LEUCOVORIN CALCIUM [Concomitant]
     Active Substance: LEUCOVORIN CALCIUM
     Indication: Product used for unknown indication
     Dosage: UNKNOWN
     Route: 065
  13. TILIDINE;NALOXONE [Concomitant]
     Indication: Product used for unknown indication
     Dosage: 4|50 MG
     Route: 048
  14. PREGABALIN [Concomitant]
     Active Substance: PREGABALIN
     Indication: Product used for unknown indication
     Route: 048
  15. POTASSIUM CHLORIDE [Concomitant]
     Active Substance: POTASSIUM CHLORIDE
     Indication: Product used for unknown indication
     Route: 048

REACTIONS (5)
  - Hypokalaemia [Unknown]
  - Nausea [Unknown]
  - Hyponatraemia [Unknown]
  - Haematochezia [Unknown]
  - Diarrhoea [Unknown]
